FAERS Safety Report 24524529 (Version 1)
Quarter: 2024Q4

REPORT INFORMATION
  Report Type: Spontaneous
  Country: GB (occurrence: GB)
  Receive Date: 20241019
  Receipt Date: 20241019
  Transmission Date: 20250114
  Serious: Yes (Disabling)
  Sender: ACCORD
  Company Number: None

PATIENT
  Age: 93 Year
  Sex: Male
  Weight: 85 kg

DRUGS (2)
  1. FINASTERIDE [Suspect]
     Active Substance: FINASTERIDE
     Indication: Prostate cancer stage I
     Dates: start: 20170101, end: 20190108
  2. TAMSULOSIN [Concomitant]
     Active Substance: TAMSULOSIN
     Indication: Prostatomegaly

REACTIONS (1)
  - Quality of life scale [Not Recovered/Not Resolved]

NARRATIVE: CASE EVENT DATE: 20170101
